FAERS Safety Report 13422229 (Version 1)
Quarter: 2017Q2

REPORT INFORMATION
  Report Type: Spontaneous
  Country: US (occurrence: US)
  Receive Date: 20170407
  Receipt Date: 20170407
  Transmission Date: 20170830
  Serious: Yes (Disabling)
  Sender: FDA-Public Use
  Company Number: None

PATIENT
  Age: 38 Year
  Sex: Male
  Weight: 81.9 kg

DRUGS (2)
  1. CIPROFLOXACIN 250MG [Suspect]
     Active Substance: CIPROFLOXACIN
     Indication: FURUNCLE
     Dosage: ?          QUANTITY:28 TABLET(S);?
     Route: 048
     Dates: start: 20140629, end: 20140705
  2. VENTOLIN HFA [Concomitant]
     Active Substance: ALBUTEROL SULFATE

REACTIONS (6)
  - Joint stiffness [None]
  - Photosensitivity reaction [None]
  - Arthralgia [None]
  - Urticaria [None]
  - Tendon pain [None]
  - Ligament pain [None]

NARRATIVE: CASE EVENT DATE: 20140705
